FAERS Safety Report 10911008 (Version 1)
Quarter: 2015Q1

REPORT INFORMATION
  Report Type: Spontaneous
  Country: SE (occurrence: SE)
  Receive Date: 20150312
  Receipt Date: 20150312
  Transmission Date: 20150721
  Serious: Yes (Other)
  Sender: FDA-Public Use
  Company Number: SE-ELI_LILLY_AND_COMPANY-SE201503000300

PATIENT
  Sex: Male

DRUGS (10)
  1. YENTREVE [Suspect]
     Active Substance: DULOXETINE HYDROCHLORIDE
     Indication: NEURALGIA
     Dosage: 20 MG, OTHER
     Route: 065
     Dates: start: 2009, end: 20141116
  2. STESOLID [Concomitant]
     Active Substance: DIAZEPAM
     Dosage: 2 MG, UNKNOWN
     Route: 065
  3. HERACILLIN                         /00239102/ [Concomitant]
     Dosage: UNK, UNKNOWN
     Route: 065
  4. OMEPRAZOLE. [Concomitant]
     Active Substance: OMEPRAZOLE
     Dosage: UNK, UNKNOWN
     Route: 065
  5. CYMBALTA [Suspect]
     Active Substance: DULOXETINE HYDROCHLORIDE
     Indication: NEURALGIA
     Dosage: 30 MG, OTHER
     Route: 065
     Dates: start: 2008, end: 20140913
  6. CLINDAMYCIN [Concomitant]
     Active Substance: CLINDAMYCIN\CLINDAMYCIN PHOSPHATE
     Dosage: UNK, UNKNOWN
     Route: 065
  7. TRAMADOL [Concomitant]
     Active Substance: TRAMADOL
     Dosage: UNK, UNKNOWN
     Route: 065
  8. AERIUS [Concomitant]
     Active Substance: DESLORATADINE
     Dosage: UNK, UNKNOWN
     Route: 065
  9. DICLOFENAC [Concomitant]
     Active Substance: DICLOFENAC
     Dosage: UNK, UNKNOWN
     Route: 065
  10. SULFAMETHOXAZOLE AND TRIMETHOPRIM [Concomitant]
     Active Substance: SULFAMETHOXAZOLE\TRIMETHOPRIM
     Dosage: UNK, UNKNOWN
     Route: 065

REACTIONS (3)
  - Rash [Unknown]
  - Anosmia [Unknown]
  - Intervertebral disc protrusion [Unknown]
